FAERS Safety Report 10663709 (Version 1)
Quarter: 2014Q4

REPORT INFORMATION
  Report Type: Spontaneous
  Country: GB (occurrence: GB)
  Receive Date: 20141219
  Receipt Date: 20141219
  Transmission Date: 20150529
  Serious: Yes (Hospitalization)
  Sender: FDA-Public Use
  Company Number: GB-ACCORD-027560

PATIENT
  Age: 76 Year
  Sex: Female

DRUGS (6)
  1. COCODAMOL [Suspect]
     Active Substance: ACETAMINOPHEN\CODEINE PHOSPHATE
     Indication: SCIATICA
     Dosage: CO-CODAMOL 30/500?FOUR TIMES A DAY
     Route: 048
     Dates: start: 20141124, end: 20141130
  2. LYRICA [Suspect]
     Active Substance: PREGABALIN
     Indication: SCIATICA
     Route: 048
     Dates: start: 20141124, end: 20141130
  3. ALENDRONATE SODIUM/ALENDRONIC ACID [Concomitant]
  4. TRAMADOL/TRAMADOL HYDROCHLORIDE [Suspect]
     Active Substance: TRAMADOL HYDROCHLORIDE
     Indication: SCIATICA
     Dosage: 50-100 MG FOUR TIMES A DAY
     Route: 048
     Dates: start: 20141124, end: 20141130
  5. DIAZEPAM. [Suspect]
     Active Substance: DIAZEPAM
     Indication: SCIATICA
     Dosage: 2-4 MG EVERY NIGHT
     Route: 048
     Dates: start: 20141124, end: 20141130
  6. ADCAL-D3 [Concomitant]
     Active Substance: CALCIUM CARBONATE\CHOLECALCIFEROL

REACTIONS (3)
  - Delirium [Recovering/Resolving]
  - Hallucination [None]
  - Confusional state [None]

NARRATIVE: CASE EVENT DATE: 20141127
